FAERS Safety Report 6194074-8 (Version None)
Quarter: 2009Q2

REPORT INFORMATION
  Report Type: 
  Country: None (occurrence: None)
  Receive Date: 20090518
  Receipt Date: 20090226
  Transmission Date: 20091009
  Serious: Yes (Hospitalization, Other)
  Sender: FDA-Public Use
  Company Number: DE-ABBOTT-09P-062-0502072-00

PATIENT
  Sex: Female
  Weight: 54 kg

DRUGS (7)
  1. HUMIRA [Suspect]
     Indication: RHEUMATOID ARTHRITIS
     Dates: start: 20070401, end: 20070501
  2. HUMIRA [Suspect]
     Dates: start: 20070515
  3. METHOTREXATE [Concomitant]
     Indication: RHEUMATOID ARTHRITIS
  4. LEFLUNOMIDE [Concomitant]
     Indication: RHEUMATOID ARTHRITIS
     Dates: end: 20070501
  5. ANALGESICS [Concomitant]
     Indication: DRUG USE FOR UNKNOWN INDICATION
  6. NSAID'S [Concomitant]
     Indication: RHEUMATOID ARTHRITIS
  7. GLUCOCORTICOIDS [Concomitant]
     Indication: RHEUMATOID ARTHRITIS

REACTIONS (2)
  - CERVICAL DYSPLASIA [None]
  - URINARY TRACT INFECTION [None]
